FAERS Safety Report 17985627 (Version 1)
Quarter: 2020Q3

REPORT INFORMATION
  Report Type: Spontaneous
  Country: CH (occurrence: CH)
  Receive Date: 20200706
  Receipt Date: 20200706
  Transmission Date: 20201103
  Serious: Yes (Other)
  Sender: FDA-Public Use
  Company Number: CH-009507513-2007CHE001535

PATIENT
  Age: 71 Year
  Sex: Female

DRUGS (4)
  1. AXITINIB [Suspect]
     Active Substance: AXITINIB
     Indication: MALIGNANT NEOPLASM PROGRESSION
     Dosage: 5MG 2X/D
     Dates: start: 201910
  2. AXITINIB [Suspect]
     Active Substance: AXITINIB
     Indication: IMMUNOCHEMOTHERAPY
     Dosage: 5MG/D
  3. PEMBROLIZUMAB. [Suspect]
     Active Substance: PEMBROLIZUMAB
     Indication: IMMUNOCHEMOTHERAPY
  4. PEMBROLIZUMAB. [Suspect]
     Active Substance: PEMBROLIZUMAB
     Indication: MALIGNANT NEOPLASM PROGRESSION
     Dosage: 200MG 1X/3 WEEKS
     Route: 041
     Dates: start: 201910

REACTIONS (4)
  - Arthralgia [Recovered/Resolved]
  - Hepatotoxicity [Recovered/Resolved]
  - Fatigue [Recovered/Resolved]
  - Malignant neoplasm progression [Unknown]

NARRATIVE: CASE EVENT DATE: 2019
